FAERS Safety Report 13173629 (Version 1)
Quarter: 2017Q1

REPORT INFORMATION
  Report Type: Spontaneous
  Country: US (occurrence: US)
  Receive Date: 20170201
  Receipt Date: 20170201
  Transmission Date: 20170428
  Serious: No
  Sender: FDA-Public Use
  Company Number: US-ABBVIE-16P-163-1566358-00

PATIENT

DRUGS (1)
  1. HUMIRA [Suspect]
     Active Substance: ADALIMUMAB
     Indication: PRODUCT USED FOR UNKNOWN INDICATION
     Route: 058

REACTIONS (13)
  - Abdominal distension [Unknown]
  - Disturbance in attention [Unknown]
  - Asthenia [Unknown]
  - Activities of daily living impaired [Unknown]
  - Fatigue [Unknown]
  - Stress [Unknown]
  - Psoriatic arthropathy [Unknown]
  - Emotional distress [Unknown]
  - Peripheral swelling [Unknown]
  - Psoriasis [Unknown]
  - Sluggishness [Unknown]
  - Anxiety [Unknown]
  - Pain in extremity [Unknown]
